FAERS Safety Report 8321634 (Version 2)
Quarter: 2012Q4

REPORT INFORMATION
  Report Type: Report from Study
  Country: US (occurrence: US)
  Receive Date: 20120104
  Receipt Date: 20120927
  Transmission Date: 20130627
  Serious: Yes (Hospitalization)
  Sender: FDA-Public Use
  Company Number: US-CELGENEUS-163-20785-11123159

PATIENT
  Age: 86 Year
  Sex: Female
  Weight: 61.4 kg

DRUGS (7)
  1. THALOMID [Suspect]
     Indication: MULTIPLE MYELOMA
     Dosage: 100 Milligram
     Route: 048
     Dates: start: 20100719
  2. THALOMID [Suspect]
     Dosage: 100 Milligram
     Route: 048
     Dates: start: 20100816, end: 20100905
  3. MELPHALAN [Suspect]
     Indication: MULTIPLE MYELOMA
     Dosage: 9 milligram/sq. meter
     Route: 048
     Dates: start: 20100719
  4. MELPHALAN [Suspect]
     Dosage: 9 milligram/sq. meter
     Route: 048
     Dates: start: 20100816, end: 20100819
  5. PREDNISONE [Suspect]
     Indication: MULTIPLE MYELOMA
     Dosage: 100 Milligram
     Route: 048
     Dates: start: 20100719
  6. PREDNISONE [Suspect]
     Dosage: 100 Milligram
     Route: 048
     Dates: start: 20100816, end: 20100819
  7. ASPIRIN [Concomitant]
     Indication: DRUG USE FOR UNKNOWN INDICATION
     Dosage: 325 Milligram
     Route: 048
     Dates: start: 20100719

REACTIONS (2)
  - Renal failure acute [Recovered/Resolved]
  - Gastroenteritis [Recovered/Resolved]
